FAERS Safety Report 7357977-4 (Version None)
Quarter: 2011Q1

REPORT INFORMATION
  Report Type: 
  Country: None (occurrence: None)
  Receive Date: 20110314
  Receipt Date: 20110314
  Transmission Date: 20110831
  Serious: Yes (Hospitalization)
  Sender: FDA-Public Use
  Company Number: None

PATIENT
  Sex: Male
  Weight: 75.91 kg

DRUGS (5)
  1. CYCLOPHOSPHAMIDE [Suspect]
     Dosage: 1432 MG
  2. RITUXIMAB (MOAB C2B8 ANTI CD20, CHIMERIC) [Suspect]
     Dosage: 716 MG
  3. VINCRISTINE SULFATE [Suspect]
     Dosage: 2 MG
  4. DOXIL [Suspect]
     Dosage: 76 MG
  5. PREDNISONE [Suspect]
     Dosage: 500 MG

REACTIONS (6)
  - NEUROPATHY PERIPHERAL [None]
  - ASTHENIA [None]
  - HYPOAESTHESIA [None]
  - PAIN [None]
  - ACTIVITIES OF DAILY LIVING IMPAIRED [None]
  - NEOPLASM MALIGNANT [None]
